FAERS Safety Report 12779049 (Version 1)
Quarter: 2016Q3

REPORT INFORMATION
  Report Type: Spontaneous
  Country: US (occurrence: US)
  Receive Date: 20160926
  Receipt Date: 20160926
  Transmission Date: 20161109
  Serious: No
  Sender: FDA-Public Use
  Company Number: US-JAZZ-2016-US-011199

PATIENT
  Sex: Female

DRUGS (29)
  1. FLONASE [Concomitant]
     Active Substance: FLUTICASONE PROPIONATE
  2. POTASSIUM CITRATE. [Concomitant]
     Active Substance: POTASSIUM CITRATE
  3. SPIRONOLACTONE. [Concomitant]
     Active Substance: SPIRONOLACTONE
  4. BYSTOLIC [Concomitant]
     Active Substance: NEBIVOLOL HYDROCHLORIDE
  5. DULERA [Concomitant]
     Active Substance: FORMOTEROL FUMARATE DIHYDRATE\MOMETASONE FUROATE
  6. PRISTIQ EXTENDED-RELEASE [Concomitant]
     Active Substance: DESVENLAFAXINE SUCCINATE
  7. TIROSINT [Concomitant]
     Active Substance: LEVOTHYROXINE SODIUM
  8. METHOTREXATE. [Concomitant]
     Active Substance: METHOTREXATE
  9. PLAQUENIL [Concomitant]
     Active Substance: HYDROXYCHLOROQUINE SULFATE
  10. MONTELUKAST SODIUM. [Concomitant]
     Active Substance: MONTELUKAST SODIUM
  11. XYREM [Suspect]
     Active Substance: SODIUM OXYBATE
     Indication: CATAPLEXY
  12. PROVENTIL [Concomitant]
     Active Substance: ALBUTEROL
  13. XYREM [Suspect]
     Active Substance: SODIUM OXYBATE
     Indication: NARCOLEPSY
     Dosage: 2.25 G, BID
     Route: 048
     Dates: start: 201408
  14. LINZESS [Concomitant]
     Active Substance: LINACLOTIDE
  15. MODAFINIL. [Concomitant]
     Active Substance: MODAFINIL
  16. SEROQUEL [Concomitant]
     Active Substance: QUETIAPINE FUMARATE
  17. VITAMIN C [Concomitant]
     Active Substance: ASCORBIC ACID
  18. FOLIC ACID. [Concomitant]
     Active Substance: FOLIC ACID
  19. CARISOPRODOL. [Concomitant]
     Active Substance: CARISOPRODOL
  20. ACIPHEX [Concomitant]
     Active Substance: RABEPRAZOLE SODIUM
  21. ELIDEL [Concomitant]
     Active Substance: PIMECROLIMUS
  22. LORAZEPAM. [Concomitant]
     Active Substance: LORAZEPAM
  23. ASPIRIN. [Concomitant]
     Active Substance: ASPIRIN
  24. KLONOPIN [Concomitant]
     Active Substance: CLONAZEPAM
  25. GABAPENTIN. [Concomitant]
     Active Substance: GABAPENTIN
  26. ULTRAM [Concomitant]
     Active Substance: TRAMADOL HYDROCHLORIDE
  27. BIOTIN [Concomitant]
     Active Substance: BIOTIN
  28. MOBIC [Concomitant]
     Active Substance: MELOXICAM
  29. VITAMIN D3 [Concomitant]
     Active Substance: CHOLECALCIFEROL

REACTIONS (3)
  - Drug ineffective [Unknown]
  - Malaise [Unknown]
  - Unevaluable event [Not Recovered/Not Resolved]
